FAERS Safety Report 6381464-3 (Version None)
Quarter: 2009Q3

REPORT INFORMATION
  Report Type: 
  Country: None (occurrence: None)
  Receive Date: 20090923
  Receipt Date: 20090909
  Transmission Date: 20100115
  Serious: Yes (Hospitalization)
  Sender: FDA-Public Use
  Company Number: 8052083

PATIENT
  Age: 17 Year
  Sex: Male

DRUGS (4)
  1. KEPPRA [Suspect]
     Indication: EPILEPSY
     Dosage: 1500 M /D PO
     Route: 048
     Dates: start: 20070101
  2. VIMPAT [Suspect]
     Dosage: 400 MG /D
  3. LAMOTRIGINE [Concomitant]
  4. FRISIUM [Concomitant]

REACTIONS (1)
  - STATUS EPILEPTICUS [None]
